FAERS Safety Report 6969564-8 (Version None)
Quarter: 2010Q3

REPORT INFORMATION
  Report Type: 
  Country: None (occurrence: None)
  Receive Date: 20100907
  Receipt Date: 20100907
  Transmission Date: 20110219
  Serious: Yes (Other)
  Sender: FDA-Public Use
  Company Number: None

PATIENT
  Sex: Female
  Weight: 95.2554 kg

DRUGS (1)
  1. TOPIRAMATE [Suspect]
     Indication: PAIN
     Dosage: 25MG 1-4/DAY PO
     Route: 048
     Dates: start: 20100824, end: 20100906

REACTIONS (5)
  - DEPRESSION [None]
  - FATIGUE [None]
  - NAUSEA [None]
  - PAIN [None]
  - PARAESTHESIA [None]
